FAERS Safety Report 4922931-6 (Version None)
Quarter: 2006Q1

REPORT INFORMATION
  Report Type: 
  Country: None (occurrence: None)
  Receive Date: 20060224
  Receipt Date: 20051227
  Transmission Date: 20060701
  Serious: Yes (Death)
  Sender: FDA-Public Use
  Company Number: MY-MERCK-0512MYS00008

PATIENT
  Age: 43 Year
  Sex: Male

DRUGS (1)
  1. CANCIDAS [Suspect]
     Route: 042
     Dates: start: 20051201, end: 20051201

REACTIONS (1)
  - DEATH [None]
